FAERS Safety Report 9356103 (Version 1)
Quarter: 2013Q2

REPORT INFORMATION
  Report Type: Spontaneous
  Country: FR (occurrence: FR)
  Receive Date: 20130619
  Receipt Date: 20130619
  Transmission Date: 20140414
  Serious: Yes (Death, Life-Threatening)
  Sender: FDA-Public Use
  Company Number: FR-ASTRAZENECA-2013SE42177

PATIENT
  Age: 29 Year
  Sex: Male

DRUGS (4)
  1. DIPRIVAN [Suspect]
     Dosage: VARIOUS OUTFLOW BETWEEN 50 AND 200 MG/H
     Route: 042
     Dates: start: 20070802, end: 20070805
  2. KEPPRA [Suspect]
     Dosage: 100 MG/ML
     Route: 042
     Dates: start: 20070731, end: 20070805
  3. MORPHINE [Concomitant]
     Route: 042
  4. AZANTAC [Concomitant]
     Route: 042

REACTIONS (5)
  - Cardio-respiratory arrest [Fatal]
  - Bradycardia [Fatal]
  - Blood pressure immeasurable [Unknown]
  - Ventricular tachycardia [Unknown]
  - Coma [Unknown]
